FAERS Safety Report 21653408 (Version 1)
Quarter: 2022Q4

REPORT INFORMATION
  Report Type: Report from Study
  Country: US (occurrence: US)
  Receive Date: 20221128
  Receipt Date: 20221128
  Transmission Date: 20230113
  Serious: No
  Sender: FDA-Public Use
  Company Number: US-ABBVIE-4215445

PATIENT
  Sex: Male

DRUGS (12)
  1. IMBRUVICA [Suspect]
     Active Substance: IBRUTINIB
     Indication: Chronic lymphocytic leukaemia
     Route: 048
     Dates: start: 20220918
  2. Glipizide-metformin HCl [Concomitant]
     Indication: Product used for unknown indication
     Dosage: 5-500 MG
     Route: 048
  3. LUBIPROSTONE [Concomitant]
     Active Substance: LUBIPROSTONE
     Indication: Product used for unknown indication
     Dosage: 24 MCG
     Route: 048
  4. CLONAZEPAM [Concomitant]
     Active Substance: CLONAZEPAM
     Indication: Product used for unknown indication
     Dosage: 1 MG
     Route: 048
  5. DOCUSATE SODIUM [Concomitant]
     Active Substance: DOCUSATE SODIUM
     Indication: Product used for unknown indication
     Dosage: 100 MG
     Route: 048
  6. MESALAMINE [Concomitant]
     Active Substance: MESALAMINE
     Indication: Product used for unknown indication
     Dosage: 1000 MG
     Route: 054
  7. ACARBOSE [Concomitant]
     Active Substance: ACARBOSE
     Indication: Product used for unknown indication
     Dosage: 100 MG
     Route: 048
  8. SENNA-TIME [Concomitant]
     Active Substance: SENNOSIDES
     Indication: Product used for unknown indication
     Dosage: 8.6 MG
     Route: 048
  9. NEPHPLEX RX [Concomitant]
     Active Substance: ASCORBIC ACID\BIOTIN\COBALAMIN\FOLIC ACID\NIACINAMIDE\PANTOTHENIC ACID\PYRIDOXINE HYDROCHLORIDE\RIBO
     Indication: Product used for unknown indication
     Route: 048
  10. ENALAPRIL\HYDROCHLOROTHIAZIDE [Concomitant]
     Active Substance: ENALAPRIL\HYDROCHLOROTHIAZIDE
     Indication: Product used for unknown indication
     Dosage: 12.5 MG
     Route: 048
  11. JANUVIA [Concomitant]
     Active Substance: SITAGLIPTIN PHOSPHATE
     Indication: Product used for unknown indication
     Dosage: 100 MG
     Route: 048
  12. SIMVASTATIN [Concomitant]
     Active Substance: SIMVASTATIN
     Indication: Product used for unknown indication
     Dosage: 20 MG
     Route: 048

REACTIONS (1)
  - Constipation [Unknown]
